FAERS Safety Report 15404287 (Version 2)
Quarter: 2018Q4

REPORT INFORMATION
  Report Type: Spontaneous
  Country: US (occurrence: US)
  Receive Date: 20180919
  Receipt Date: 20181218
  Transmission Date: 20190204
  Serious: Yes (Hospitalization, Other)
  Sender: FDA-Public Use
  Company Number: US-OTSUKA-2018_019502

PATIENT

DRUGS (9)
  1. VIREAD [Concomitant]
     Active Substance: TENOFOVIR DISOPROXIL FUMARATE
     Indication: PRODUCT USED FOR UNKNOWN INDICATION
     Dosage: UNK
     Route: 065
  2. ESTROGEN NOS W/METHYLTESTOSTERONE [Concomitant]
     Indication: PRODUCT USED FOR UNKNOWN INDICATION
     Dosage: 0.625-1.25 MG TABLET
     Route: 065
  3. ABILIFY [Suspect]
     Active Substance: ARIPIPRAZOLE
     Indication: SCHIZOPHRENIA
     Dosage: 10-30 MG QD
     Route: 065
     Dates: start: 2014, end: 2016
  4. ABILIFY [Suspect]
     Active Substance: ARIPIPRAZOLE
     Indication: BIPOLAR DISORDER
  5. NEXIUM [Concomitant]
     Active Substance: ESOMEPRAZOLE MAGNESIUM
     Indication: PRODUCT USED FOR UNKNOWN INDICATION
     Dosage: UNK
     Route: 065
  6. DEPAKOTE [Concomitant]
     Active Substance: DIVALPROEX SODIUM
     Indication: PRODUCT USED FOR UNKNOWN INDICATION
     Dosage: 3 DF, QD (3 TABLET BY MOUTH AT BEDTIME)
     Route: 048
  7. LATUDA [Concomitant]
     Active Substance: LURASIDONE HYDROCHLORIDE
     Indication: PRODUCT USED FOR UNKNOWN INDICATION
     Dosage: 2 DF, QD (2 TABLET BY MOUTH EVERY EVENING WITH MEALS)
     Route: 048
  8. ONDANSETRON [Concomitant]
     Active Substance: ONDANSETRON
     Indication: NAUSEA
     Dosage: 1 DF, QD (1 TABLET BY MOUTH EVERY EVENING AS NEEDED)
     Route: 048
  9. ABILIFY [Suspect]
     Active Substance: ARIPIPRAZOLE
     Indication: ANXIETY

REACTIONS (21)
  - Mental disorder [Unknown]
  - Major depression [Unknown]
  - Malaise [Unknown]
  - Compulsive shopping [Not Recovered/Not Resolved]
  - Post-traumatic stress disorder [Unknown]
  - Obsessive-compulsive disorder [Unknown]
  - Agitation [Unknown]
  - Economic problem [Unknown]
  - Panic reaction [Unknown]
  - Anxiety [Unknown]
  - Gambling disorder [Recovered/Resolved]
  - Suicidal ideation [Not Recovered/Not Resolved]
  - Cognitive disorder [Unknown]
  - Loss of employment [Unknown]
  - Borderline personality disorder [Unknown]
  - Sleep disorder [Unknown]
  - Product use in unapproved indication [Unknown]
  - Dementia [Unknown]
  - Suicide attempt [Not Recovered/Not Resolved]
  - Depressed mood [Unknown]
  - Personal relationship issue [Unknown]

NARRATIVE: CASE EVENT DATE: 20151201
